FAERS Safety Report 12165920 (Version 1)
Quarter: 2016Q1

REPORT INFORMATION
  Report Type: Spontaneous
  Country: FR (occurrence: US)
  Receive Date: 20160309
  Receipt Date: 20160309
  Transmission Date: 20160526
  Serious: Yes (Other)
  Sender: FDA-Public Use
  Company Number: FR-TAKEDA-2016TUS004043

PATIENT
  Age: 40 Year
  Sex: Female

DRUGS (2)
  1. COLCHICINE. [Suspect]
     Active Substance: COLCHICINE
     Indication: BREAST ABSCESS
     Dosage: 1 MG, QD
     Route: 065
  2. COLCHICINE. [Suspect]
     Active Substance: COLCHICINE
     Indication: COLITIS ULCERATIVE

REACTIONS (2)
  - Colitis ulcerative [Unknown]
  - Off label use [Unknown]
